FAERS Safety Report 6672558-3 (Version None)
Quarter: 2010Q2

REPORT INFORMATION
  Report Type: 
  Country: None (occurrence: None)
  Receive Date: 20100408
  Receipt Date: 20100329
  Transmission Date: 20101027
  Serious: Yes (Hospitalization)
  Sender: FDA-Public Use
  Company Number: FR-BRISTOL-MYERS SQUIBB COMPANY-15048176

PATIENT
  Age: 82 Year
  Sex: Male

DRUGS (13)
  1. CARBIDOPA + LEVODOPA CR TABS 50/200MG [Suspect]
     Indication: PARKINSON'S DISEASE
     Dosage: 1 DF=200-50MG
     Route: 048
     Dates: end: 20090301
  2. CARBIDOPA + LEVODOPA CR TABS 25/100MG [Suspect]
     Indication: PARKINSON'S DISEASE
     Dosage: 1 DF = 250-62.5 MG
     Route: 048
     Dates: start: 20090301
  3. MODOPAR [Suspect]
     Indication: PARKINSON'S DISEASE
     Dosage: FORM = CAPSULES 1 DF = 100-25MG
     Route: 048
     Dates: end: 20090301
  4. LEPONEX [Suspect]
     Indication: MENTAL DISORDER
     Dosage: INTERRUPTED ON 12MAR09 1 DF = 0.75 DOSE UNIT
     Route: 048
  5. EXELON [Suspect]
     Indication: DEMENTIA
     Dosage: 2 DF = 2 DOSE UNITS
     Route: 048
     Dates: end: 20090316
  6. DIGITALINE NATIVELLE [Suspect]
     Indication: ARRHYTHMIA
     Dosage: FORM = TABS
     Route: 048
     Dates: end: 20090309
  7. ZOLOFT [Concomitant]
     Dates: end: 20090327
  8. OMIX [Concomitant]
  9. INIPOMP [Concomitant]
  10. KARDEGIC [Concomitant]
  11. ALFUZOSIN HCL [Concomitant]
     Dates: end: 20090408
  12. ROCEPHIN [Concomitant]
     Dates: start: 20090306
  13. SOLU-MEDROL [Concomitant]
     Dates: start: 20090306

REACTIONS (7)
  - AGITATION [None]
  - BRADYCARDIA [None]
  - DEPRESSED LEVEL OF CONSCIOUSNESS [None]
  - ELECTROCARDIOGRAM QT PROLONGED [None]
  - FALL [None]
  - PNEUMONIA ASPIRATION [None]
  - TREMOR [None]
